FAERS Safety Report 9924568 (Version 1)
Quarter: 2014Q1

REPORT INFORMATION
  Report Type: Spontaneous
  Country: US (occurrence: US)
  Receive Date: 20140226
  Receipt Date: 20140226
  Transmission Date: 20141002
  Serious: No
  Sender: FDA-Public Use
  Company Number: US-PFIZER INC-2014055080

PATIENT
  Sex: Male

DRUGS (1)
  1. LYRICA [Suspect]
     Dosage: 225 MG, 3X/DAY
     Dates: end: 20131231

REACTIONS (5)
  - Pain [Unknown]
  - Insomnia [Unknown]
  - Pain in extremity [Unknown]
  - Burning sensation [Unknown]
  - Hypoaesthesia [Unknown]
